FAERS Safety Report 4768078-3 (Version None)
Quarter: 2005Q3

REPORT INFORMATION
  Report Type: 
  Country: None (occurrence: None)
  Receive Date: 20050912
  Receipt Date: 20050912
  Transmission Date: 20060218
  Serious: No
  Sender: FDA-Public Use
  Company Number: None

PATIENT
  Sex: Male

DRUGS (3)
  1. TECHNETIUM 99M MACROAGGREGATED ALBUMIN (HUMAN) [Suspect]
     Indication: DIAGNOSTIC PROCEDURE
     Dosage: 2.8 MCI   ONE TIME   IV BOLUS
     Route: 040
  2. TECHNETIUM 99M MACROAGGREGATED ALBUMIN (HUMAN) [Suspect]
     Indication: FALLOT'S TETRALOGY
     Dosage: 2.8 MCI   ONE TIME   IV BOLUS
     Route: 040
  3. TECHNETIUM 99M MACROAGGREGATED ALBUMIN (HUMAN) [Suspect]
     Indication: PULMONARY ARTERY STENOSIS
     Dosage: 2.8 MCI   ONE TIME   IV BOLUS
     Route: 040

REACTIONS (2)
  - PROCEDURAL COMPLICATION [None]
  - VENTILATION/PERFUSION SCAN ABNORMAL [None]
